FAERS Safety Report 10556928 (Version 1)
Quarter: 2014Q4

REPORT INFORMATION
  Report Type: Spontaneous
  Country: US (occurrence: US)
  Receive Date: 20141031
  Receipt Date: 20141031
  Transmission Date: 20150529
  Serious: Yes (Death, Other)
  Sender: FDA-Public Use
  Company Number: US-ELI_LILLY_AND_COMPANY-US201410011119

PATIENT
  Age: 78 Year
  Sex: Male

DRUGS (2)
  1. CISPLATIN. [Suspect]
     Active Substance: CISPLATIN
     Indication: PLEURAL MESOTHELIOMA MALIGNANT
     Dosage: 75 MG/M2, CYCLICAL
     Route: 065
  2. PEMETREXED [Suspect]
     Active Substance: PEMETREXED
     Indication: PLEURAL MESOTHELIOMA MALIGNANT
     Dosage: 500 MG/M2, CYCLICAL
     Route: 065

REACTIONS (6)
  - Pneumonia [Fatal]
  - Neutropenic sepsis [Fatal]
  - Clostridium difficile colitis [Unknown]
  - Pneumonia [Unknown]
  - Neutropenia [Unknown]
  - Renal impairment [Unknown]
